FAERS Safety Report 12385477 (Version 2)
Quarter: 2017Q1

REPORT INFORMATION
  Report Type: Spontaneous
  Country: US (occurrence: US)
  Receive Date: 20160519
  Receipt Date: 20170203
  Transmission Date: 20170428
  Serious: Yes (Other)
  Sender: FDA-Public Use
  Company Number: PHHY2016US067816

PATIENT
  Age: 57 Year
  Sex: Male

DRUGS (2)
  1. ZOLEDRONIC ACID [Suspect]
     Active Substance: ZOLEDRONIC ACID
     Indication: FIBROUS DYSPLASIA OF BONE
     Dosage: 06 MG, EVERY 06 MONTHS FOR THE FIRST YEAR
     Route: 065
  2. ZOLEDRONIC ACID [Suspect]
     Active Substance: ZOLEDRONIC ACID
     Indication: BONE PAIN
     Dosage: 4 MG/DL, EVERY 03 MONTHS FOR THE SUBSEQUENT YEAR.
     Route: 065

REACTIONS (3)
  - Exposed bone in jaw [Unknown]
  - Osteonecrosis of jaw [Not Recovered/Not Resolved]
  - Product use issue [Unknown]
